FAERS Safety Report 24063115 (Version 1)
Quarter: 2024Q3

REPORT INFORMATION
  Report Type: Spontaneous
  Country: HU (occurrence: HU)
  Receive Date: 20240709
  Receipt Date: 20240709
  Transmission Date: 20241017
  Serious: Yes (Congenital Anomaly, Other)
  Sender: SANOFI AVENTIS
  Company Number: HU-SA-2018SA232593

PATIENT
  Sex: Female

DRUGS (19)
  1. ENOXAPARIN SODIUM [Suspect]
     Active Substance: ENOXAPARIN SODIUM
     Indication: Foetal exposure during pregnancy
     Dosage: UNK
     Route: 064
  2. MIDAZOLAM [Suspect]
     Active Substance: MIDAZOLAM
     Indication: Foetal exposure during pregnancy
     Dosage: 7.5 UNK
     Route: 064
  3. MIDAZOLAM [Suspect]
     Active Substance: MIDAZOLAM
     Dosage: 5 MG
     Route: 064
  4. PANTOPRAZOLE [Suspect]
     Active Substance: PANTOPRAZOLE
     Indication: Foetal exposure during pregnancy
     Dosage: 40 MG
     Route: 064
  5. AMPICILLIN [Suspect]
     Active Substance: AMPICILLIN
     Indication: Foetal exposure during pregnancy
     Dosage: 2 G, Q4H
     Route: 064
  6. DIGOXIN [Suspect]
     Active Substance: DIGOXIN
     Indication: Foetal exposure during pregnancy
     Dosage: UNK
     Route: 064
  7. PROPOFOL [Suspect]
     Active Substance: PROPOFOL
     Indication: Foetal exposure during pregnancy
     Dosage: UNK
     Route: 064
  8. SUFENTANIL [Suspect]
     Active Substance: SUFENTANIL
     Indication: Foetal exposure during pregnancy
     Dosage: 10 UG
     Route: 064
  9. HEPARIN [Suspect]
     Active Substance: HEPARIN SODIUM
     Indication: Foetal exposure during pregnancy
     Dosage: 20 IU
     Route: 064
  10. HEPARIN [Suspect]
     Active Substance: HEPARIN SODIUM
     Dosage: 10 IU
     Route: 064
  11. EPHEDRINE [Suspect]
     Active Substance: EPHEDRINE
     Indication: Foetal exposure during pregnancy
     Dosage: 5 MG
     Route: 064
  12. METOPROLOL [Suspect]
     Active Substance: METOPROLOL
     Indication: Foetal exposure during pregnancy
     Dosage: UNK
     Route: 064
  13. PROTAMINE SULFATE [Suspect]
     Active Substance: PROTAMINE SULFATE
     Indication: Foetal exposure during pregnancy
     Dosage: 200 MG
     Route: 064
  14. PIPECURONIUM [Suspect]
     Active Substance: PIPECURONIUM
     Indication: Foetal exposure during pregnancy
     Dosage: 4 MG
     Route: 064
  15. MAGNESIUM SULFATE [Suspect]
     Active Substance: MAGNESIUM SULFATE\MAGNESIUM SULFATE HEPTAHYDRATE
     Indication: Foetal exposure during pregnancy
     Dosage: UNK
     Route: 064
  16. PROPYLTHIOURACIL [Suspect]
     Active Substance: PROPYLTHIOURACIL
     Indication: Foetal exposure during pregnancy
     Dosage: UNK
     Route: 064
  17. PENAMECILLIN [Suspect]
     Active Substance: PENAMECILLIN
     Indication: Foetal exposure during pregnancy
     Dosage: UNK
     Route: 064
  18. ISOFLURANE [Suspect]
     Active Substance: ISOFLURANE
     Indication: Foetal exposure during pregnancy
     Dosage: MOTHER DOSE: 0.5-1.0 %
     Route: 064
  19. SEVOFLURANE [Suspect]
     Active Substance: SEVOFLURANE
     Indication: Foetal exposure during pregnancy
     Dosage: MOTHER DOSE: 1.5-2.0 %
     Route: 064

REACTIONS (6)
  - Syndactyly [Unknown]
  - Congenital clavicular agenesis [Unknown]
  - Adrenal insufficiency [Unknown]
  - Dysmorphism [Unknown]
  - Hypoglycaemia [Unknown]
  - Foetal exposure during pregnancy [Unknown]
